FAERS Safety Report 6428651-3 (Version None)
Quarter: 2009Q4

REPORT INFORMATION
  Report Type: 
  Country: None (occurrence: None)
  Receive Date: 20091105
  Receipt Date: 20091026
  Transmission Date: 20100525
  Serious: Yes (Hospitalization, Other)
  Sender: FDA-Public Use
  Company Number: US-PFIZER INC-2009290369

PATIENT
  Sex: Female
  Weight: 48.526 kg

DRUGS (3)
  1. DETROL LA [Suspect]
     Indication: HYPERTONIC BLADDER
     Dosage: 4 MG, 1X/DAY
     Dates: start: 20080101
  2. LEVOTHYROXINE SODIUM [Concomitant]
     Dosage: 10 MG, UNK
  3. SIMVASTATIN [Concomitant]
     Dosage: UNK

REACTIONS (8)
  - ABDOMINAL PAIN [None]
  - ABDOMINAL STRANGULATED HERNIA [None]
  - ASTHENIA [None]
  - BODY HEIGHT DECREASED [None]
  - DYSURIA [None]
  - MICTURITION URGENCY [None]
  - URINARY TRACT INFECTION [None]
  - WEIGHT DECREASED [None]
